FAERS Safety Report 6063653-0 (Version None)
Quarter: 2009Q1

REPORT INFORMATION
  Report Type: 
  Country: None (occurrence: None)
  Receive Date: 20090129
  Receipt Date: 20090115
  Transmission Date: 20090719
  Serious: Yes (Hospitalization)
  Sender: FDA-Public Use
  Company Number: KV200801494

PATIENT
  Sex: Female

DRUGS (2)
  1. ISOSORBIDE MONONITRATE [Suspect]
     Indication: CARDIAC DISORDER
     Dosage: ORAL
     Route: 048
     Dates: end: 20081101
  2. MULTIPLE UNSPECIFIED MEDICATIONS [Concomitant]

REACTIONS (2)
  - FEELING ABNORMAL [None]
  - PRODUCT QUALITY ISSUE [None]
